FAERS Safety Report 24312016 (Version 1)
Quarter: 2024Q3

REPORT INFORMATION
  Report Type: Spontaneous
  Country: CA (occurrence: CA)
  Receive Date: 20240912
  Receipt Date: 20240912
  Transmission Date: 20241017
  Serious: Yes (Hospitalization)
  Sender: ROCHE
  Company Number: CA-ROCHE-10000072596

PATIENT
  Sex: Male

DRUGS (3)
  1. TRASTUZUMAB [Interacting]
     Active Substance: TRASTUZUMAB
     Indication: Chronic lymphocytic leukaemia
     Route: 042
  2. CALQUENCE [Interacting]
     Active Substance: ACALABRUTINIB
     Indication: Chronic lymphocytic leukaemia
     Route: 048
  3. PANTOPRAZOLE [Interacting]
     Active Substance: PANTOPRAZOLE
     Indication: Chronic lymphocytic leukaemia
     Route: 048

REACTIONS (2)
  - Drug interaction [Unknown]
  - Ulcer haemorrhage [Unknown]
